FAERS Safety Report 6082083-9 (Version None)
Quarter: 2009Q1

REPORT INFORMATION
  Report Type: 
  Country: None (occurrence: None)
  Receive Date: 20090218
  Receipt Date: 20081029
  Transmission Date: 20090719
  Serious: No
  Sender: FDA-Public Use
  Company Number: US-BRISTOL-MYERS SQUIBB COMPANY-14389274

PATIENT
  Sex: Female

DRUGS (2)
  1. METFORMIN HCL [Suspect]
     Indication: DIABETES MELLITUS
     Dosage: WHITE TAB,70 ON ONE SIDE Z ON OTHER SIDE
  2. GLIPIZIDE [Suspect]
     Indication: DIABETES MELLITUS
     Dosage: 66/772 ON ONE SIDE,BLANK ON OTHER SIDE

REACTIONS (1)
  - DRUG INEFFECTIVE [None]
